FAERS Safety Report 8559845-9 (Version None)
Quarter: 2012Q3

REPORT INFORMATION
  Report Type: 
  Country: None (occurrence: None)
  Receive Date: 20120802
  Receipt Date: 20120720
  Transmission Date: 20120928
  Serious: Yes (Death)
  Sender: FDA-Public Use
  Company Number: US-COVIDIEN/TYCO HEALTHCARE/MALLINCKRODT-T201202875

PATIENT
  Age: 35 Year
  Sex: Male
  Weight: 94 kg

DRUGS (3)
  1. HYDROMORPHINE HYDROCHLORIDE [Suspect]
     Dosage: 3 MG IM Q3 HOURS
     Route: 030
  2. HYDROMORPHINE HYDROCHLORIDE [Suspect]
     Indication: ABDOMINAL PAIN LOWER
     Dosage: 3 MG IV Q4 HOURS PRN
     Route: 042
  3. OXYCODONE/ACETAMINOPHEN [Concomitant]
     Indication: HEADACHE
     Dosage: 5/325 MG UP TO 4 TABLETS QD
     Route: 048

REACTIONS (1)
  - DEATH [None]
